FAERS Safety Report 4341679-2 (Version None)
Quarter: 2004Q2

REPORT INFORMATION
  Report Type: 
  Country: None (occurrence: None)
  Receive Date: 20040419
  Receipt Date: 20040419
  Transmission Date: 20050107
  Serious: Yes (Death)
  Sender: FDA-Public Use
  Company Number: None

PATIENT
  Age: 41 Year
  Sex: Male
  Weight: 66.4 kg

DRUGS (5)
  1. FLUDARABINE PHOSPHATE [Suspect]
     Indication: ACUTE MYELOID LEUKAEMIA
     Dosage: 27 MG IV QD X 5 D
     Route: 042
     Dates: start: 20040327, end: 20040331
  2. CARBOPLATIN [Suspect]
     Indication: ACUTE MYELOID LEUKAEMIA
     Dosage: 230 MG IV OX -TL 240 X 5
     Route: 042
     Dates: start: 20040327, end: 20040401
  3. TOPOTECAN [Suspect]
     Indication: ACUTE MYELOID LEUKAEMIA
     Dosage: 1.5 MG IV OVER 24H X 3
     Route: 042
     Dates: start: 20040401, end: 20040404
  4. THALIDOMIDE [Suspect]
     Indication: ACUTE MYELOID LEUKAEMIA
     Dosage: 100 MG PO, 200 MG PO
     Route: 048
     Dates: start: 20040329, end: 20040404
  5. THALIDOMIDE [Suspect]
     Indication: ACUTE MYELOID LEUKAEMIA
     Dosage: 100 MG PO, 200 MG PO
     Route: 048
     Dates: start: 20040405, end: 20040412

REACTIONS (2)
  - DISEASE RECURRENCE [None]
  - STAPHYLOCOCCAL BACTERAEMIA [None]
